FAERS Safety Report 22043319 (Version 1)
Quarter: 2023Q1

REPORT INFORMATION
  Report Type: Spontaneous
  Country: CN (occurrence: CN)
  Receive Date: 20230228
  Receipt Date: 20230228
  Transmission Date: 20230418
  Serious: Yes (Other)
  Sender: FDA-Public Use
  Company Number: CN-NOVITIUMPHARMA-2023CNNVP00228

PATIENT
  Age: 58 Year
  Sex: Male

DRUGS (6)
  1. PREDNISONE [Suspect]
     Active Substance: PREDNISONE
     Indication: Diffuse large B-cell lymphoma
  2. LENALIDOMIDE [Concomitant]
     Active Substance: LENALIDOMIDE
     Indication: Diffuse large B-cell lymphoma
  3. RITUXIMAB [Concomitant]
     Active Substance: RITUXIMAB
     Indication: Diffuse large B-cell lymphoma
  4. CYCLOPHOSPHAMIDE [Concomitant]
     Active Substance: CYCLOPHOSPHAMIDE
     Indication: Diffuse large B-cell lymphoma
  5. EPIRUBICIN [Concomitant]
     Active Substance: EPIRUBICIN
     Indication: Diffuse large B-cell lymphoma
  6. VINCRISTINE [Concomitant]
     Active Substance: VINCRISTINE
     Indication: Diffuse large B-cell lymphoma

REACTIONS (1)
  - Myelosuppression [Unknown]
